FAERS Safety Report 13139074 (Version 2)
Quarter: 2017Q2

REPORT INFORMATION
  Report Type: Report from Study
  Country: IN (occurrence: IN)
  Receive Date: 20170123
  Receipt Date: 20170508
  Transmission Date: 20170830
  Serious: Yes (Death, Hospitalization)
  Sender: FDA-Public Use
  Company Number: PHHY2016IN149394

PATIENT
  Age: 62 Year
  Sex: Male
  Weight: 60 kg

DRUGS (5)
  1. TASIGNA [Suspect]
     Active Substance: NILOTINIB
     Dosage: 400 MG, BID
     Route: 048
     Dates: start: 201612, end: 20170108
  2. DASATINIB [Suspect]
     Active Substance: DASATINIB
     Indication: CHRONIC MYELOID LEUKAEMIA
     Route: 065
  3. TASIGNA [Suspect]
     Active Substance: NILOTINIB
     Indication: CHRONIC MYELOID LEUKAEMIA
     Dosage: 400 MG, BID
     Route: 048
     Dates: start: 20150709, end: 20150910
  4. TASIGNA [Suspect]
     Active Substance: NILOTINIB
     Dosage: 400 MG, BID
     Route: 048
     Dates: start: 20161023, end: 201612
  5. TASIGNA [Suspect]
     Active Substance: NILOTINIB
     Dosage: 400 MG, QD
     Route: 048
     Dates: start: 20170108

REACTIONS (3)
  - Death [Fatal]
  - Anaemia [Recovering/Resolving]
  - Drug ineffective [Unknown]

NARRATIVE: CASE EVENT DATE: 201508
